FAERS Safety Report 4788225-7 (Version None)
Quarter: 2005Q4

REPORT INFORMATION
  Report Type: 
  Country: None (occurrence: None)
  Receive Date: 20051004
  Receipt Date: 20051004
  Transmission Date: 20060501
  Serious: Yes (Hospitalization)
  Sender: FDA-Public Use
  Company Number: None

PATIENT
  Sex: Male
  Weight: 87.54 kg

DRUGS (11)
  1. ZETIA [Suspect]
     Indication: BLOOD CHOLESTEROL INCREASED
     Dosage: 10 MG  DAILY  PO
     Route: 048
     Dates: start: 20050810, end: 20050826
  2. ASPIRIN [Concomitant]
  3. WELLBUTRIN [Concomitant]
  4. CELEXA [Concomitant]
  5. WELLCHOL [Concomitant]
  6. DOCUSATE [Concomitant]
  7. NEXIUM [Concomitant]
  8. ALLEGRA [Concomitant]
  9. FLOVENT [Concomitant]
  10. ADVAIR DISKUS 100/50 [Concomitant]
  11. SEROQUEL [Concomitant]

REACTIONS (2)
  - BLOOD CREATINE PHOSPHOKINASE INCREASED [None]
  - MYALGIA [None]
